FAERS Safety Report 10213766 (Version 1)
Quarter: 2014Q2

REPORT INFORMATION
  Report Type: Spontaneous
  Country: FR (occurrence: None)
  Receive Date: 20140530
  Receipt Date: 20140530
  Transmission Date: 20141212
  Serious: Yes (Hospitalization)
  Sender: FDA-Public Use
  Company Number: 2014FR0233

PATIENT
  Age: 75 Year
  Sex: Female

DRUGS (13)
  1. KINERET [Suspect]
     Indication: GOUT
     Route: 058
     Dates: start: 20140304, end: 20140306
  2. TIORFAN [Suspect]
     Indication: DIARRHOEA
     Route: 048
     Dates: start: 20140306, end: 20140306
  3. ADENURIC [Suspect]
     Indication: GOUT
     Route: 048
     Dates: start: 20140302, end: 20140306
  4. HUMIRA (ADALIMUMAB) (ADALIMUMAB) [Concomitant]
  5. ALFRESS (PRAZOSIN HYROCHLORIDE) (PRAZOSIN HYDROCHLORIDE) [Concomitant]
  6. LOXEN (NICARDIPINE HYROCHLORIDE) (NICARDIPINE HYROCHLORIDE) [Concomitant]
  7. BISOCE (BISOPROLOL) (BISOPROLOL) [Concomitant]
  8. TAHOR (ATORVASTATIN CALCIUM) (ATORVASTATIN CALCIUM) [Concomitant]
  9. ARANESP (DARBEPOETIN ALFA) (DARBEPOETIN ALFA) [Concomitant]
  10. LEXOMIL (BROMAZEPAM) (BROMAZEPAM) [Concomitant]
  11. FLAGYL (METRONIDAZOLE) (METRONIDAZOLE) [Concomitant]
  12. CALCIPARINE (HEPARIN CALCIUM) (HEPARIN CALCIUM) [Concomitant]
  13. LEVOTHYROX (LEVOTHYROXINE SODIUM) (LEVOTHYROXINE SODIUM) [Concomitant]

REACTIONS (3)
  - Dermatitis exfoliative [None]
  - Face oedema [None]
  - Feeling hot [None]
